FAERS Safety Report 17534675 (Version 7)
Quarter: 2021Q4

REPORT INFORMATION
  Report Type: Spontaneous
  Country: None (occurrence: US)
  Receive Date: 20200312
  Receipt Date: 20211201
  Transmission Date: 20220303
  Serious: Yes (Hospitalization, Other)
  Sender: FDA-Public Use
  Company Number: US-AKCEA THERAPEUTICS-2019IS001474

PATIENT
  Age: 68 Year
  Sex: Male
  Weight: 65 kg

DRUGS (11)
  1. TEGSEDI [Suspect]
     Active Substance: INOTERSEN SODIUM
     Indication: Hereditary neuropathic amyloidosis
     Route: 058
     Dates: start: 20190128
  2. DEVICE [Suspect]
     Active Substance: DEVICE
  3. OMEPRAZOLE [Concomitant]
     Active Substance: OMEPRAZOLE
     Route: 065
  4. DIFLUNISAL [Concomitant]
     Active Substance: DIFLUNISAL
     Route: 065
     Dates: end: 20190321
  5. TEGSEDI [Suspect]
     Active Substance: INOTERSEN SODIUM
     Route: 058
     Dates: start: 20190225
  6. VITAMINS [Concomitant]
     Active Substance: VITAMINS
     Route: 065
  7. CURCUMIN [Concomitant]
     Active Substance: CURCUMIN
     Route: 065
  8. DOFETILIDE [Concomitant]
     Active Substance: DOFETILIDE
     Route: 065
  9. ELIQUIS [Concomitant]
     Active Substance: APIXABAN
     Route: 065
  10. ENALAPRIL MALEATE [Concomitant]
     Active Substance: ENALAPRIL MALEATE
     Route: 065
  11. GREEN TEA LEAF [Concomitant]
     Active Substance: GREEN TEA LEAF
     Route: 065

REACTIONS (19)
  - Urine protein/creatinine ratio increased [Unknown]
  - Urine analysis abnormal [Unknown]
  - Renal disorder [Not Recovered/Not Resolved]
  - Protein urine present [Unknown]
  - Urine abnormality [Unknown]
  - Bacterial test positive [Unknown]
  - Urinary casts [Unknown]
  - Bleeding time prolonged [Recovered/Resolved]
  - Wound [Recovered/Resolved]
  - Gingival bleeding [Recovered/Resolved]
  - Atrial fibrillation [Unknown]
  - Tremor [Unknown]
  - Chills [Unknown]
  - Headache [Unknown]
  - Platelet count decreased [Unknown]
  - Urinary sediment present [Unknown]
  - Pyrexia [Unknown]
  - Feeling abnormal [Unknown]
  - Insomnia [Unknown]

NARRATIVE: CASE EVENT DATE: 20190101
